FAERS Safety Report 13105778 (Version 1)
Quarter: 2017Q1

REPORT INFORMATION
  Report Type: Spontaneous
  Country: US (occurrence: US)
  Receive Date: 20170111
  Receipt Date: 20170111
  Transmission Date: 20170428
  Serious: Yes (Hospitalization)
  Sender: FDA-Public Use
  Company Number: None

PATIENT
  Age: 46 Year
  Sex: Female

DRUGS (1)
  1. BENAZEPRIL HCL [Suspect]
     Active Substance: BENAZEPRIL HYDROCHLORIDE
     Indication: HYPERTENSION
     Route: 048
     Dates: start: 20141022, end: 20141106

REACTIONS (6)
  - Pharyngeal oedema [None]
  - Tracheal disorder [None]
  - Swelling face [None]
  - Respiratory disorder [None]
  - Swollen tongue [None]
  - Hypersensitivity [None]

NARRATIVE: CASE EVENT DATE: 20141107
